FAERS Safety Report 9661043 (Version 1)
Quarter: 2013Q4

REPORT INFORMATION
  Report Type: Spontaneous
  Country: FR (occurrence: FR)
  Receive Date: 20131031
  Receipt Date: 20131031
  Transmission Date: 20140711
  Serious: Yes (Life-Threatening)
  Sender: FDA-Public Use
  Company Number: FR-GLAXOSMITHKLINE-B0934722A

PATIENT
  Age: 79 Year
  Sex: Female

DRUGS (2)
  1. LAMICTAL [Suspect]
     Indication: EPILEPSY
     Route: 048
     Dates: start: 201306, end: 20131009
  2. XARELTO [Suspect]
     Indication: PRODUCT USED FOR UNKNOWN INDICATION
     Dosage: 20MG PER DAY
     Route: 048
     Dates: start: 20121126, end: 20131009

REACTIONS (9)
  - Cerebral haemorrhage [Recovering/Resolving]
  - Hemiplegia [Unknown]
  - Dysarthria [Unknown]
  - VIIth nerve paralysis [Unknown]
  - Facial spasm [Unknown]
  - Aphasia [Unknown]
  - Grand mal convulsion [Unknown]
  - Coma [Unknown]
  - Treatment noncompliance [Unknown]
